FAERS Safety Report 13963864 (Version 2)
Quarter: 2017Q4

REPORT INFORMATION
  Report Type: Spontaneous
  Country: DE (occurrence: DE)
  Receive Date: 20170913
  Receipt Date: 20171101
  Transmission Date: 20180320
  Serious: Yes (Other)
  Sender: FDA-Public Use
  Company Number: DE-009507513-1709DEU005688

PATIENT
  Sex: Male

DRUGS (1)
  1. EZETROL [Suspect]
     Active Substance: EZETIMIBE
     Dosage: UNK
     Route: 048

REACTIONS (4)
  - Cataract [Not Recovered/Not Resolved]
  - Hepatitis E [Recovered/Resolved]
  - Visual impairment [Not Recovered/Not Resolved]
  - Strabismus [Not Recovered/Not Resolved]
